FAERS Safety Report 19994503 (Version 1)
Quarter: 2021Q4

REPORT INFORMATION
  Report Type: Spontaneous
  Country: US (occurrence: US)
  Receive Date: 20211025
  Receipt Date: 20211025
  Transmission Date: 20220303
  Serious: Yes (Other)
  Sender: FDA-Public Use
  Company Number: None

PATIENT
  Age: 36 Year
  Sex: Female
  Weight: 78.3 kg

DRUGS (1)
  1. CHANTIX [Suspect]
     Active Substance: VARENICLINE TARTRATE
     Indication: Smoking cessation therapy
     Dosage: ?          QUANTITY:1 TABLET(S);
     Route: 048

REACTIONS (3)
  - Mood swings [None]
  - Aggression [None]
  - Disorientation [None]

NARRATIVE: CASE EVENT DATE: 20191201
